FAERS Safety Report 10008993 (Version 1)
Quarter: 2014Q1

REPORT INFORMATION
  Report Type: Spontaneous
  Country: US (occurrence: US)
  Receive Date: 20140313
  Receipt Date: 20140313
  Transmission Date: 20141002
  Serious: No
  Sender: FDA-Public Use
  Company Number: US-INCYTE CORPORATION-2012IN001215

PATIENT
  Age: 65 Year
  Sex: Female

DRUGS (6)
  1. JAKAFI [Suspect]
     Indication: MYELOFIBROSIS
     Dosage: 15 MG, QD
     Route: 048
     Dates: end: 20120221
  2. JAKAFI [Suspect]
     Dosage: 15MG, QD (HALF A TABLET)
     Route: 048
     Dates: start: 20120303, end: 20120315
  3. JAKAFI [Suspect]
     Dosage: 10 MG, QD
     Route: 048
     Dates: start: 20120316
  4. PROCRIT [Concomitant]
     Dosage: DOSE UNSPECIFIED
  5. MEDROXYPROGESTERONE [Concomitant]
     Dosage: 2.5 MG, QOD (ONE-HALF TABLET)
  6. PREMARIN [Concomitant]
     Dosage: 0.3 MG, QOD

REACTIONS (2)
  - Haemoglobin decreased [Unknown]
  - Medication error [Recovered/Resolved]
